FAERS Safety Report 20354101 (Version 1)
Quarter: 2022Q1

REPORT INFORMATION
  Report Type: Spontaneous
  Country: SE (occurrence: SE)
  Receive Date: 20220120
  Receipt Date: 20220120
  Transmission Date: 20220423
  Serious: Yes (Hospitalization, Other)
  Sender: FDA-Public Use
  Company Number: None

PATIENT
  Age: 46 Year
  Sex: Female

DRUGS (11)
  1. CANAGLIFLOZIN [Suspect]
     Active Substance: CANAGLIFLOZIN
     Indication: Type 2 diabetes mellitus
     Route: 048
     Dates: start: 20201230, end: 20210805
  2. METFORMIN [Suspect]
     Active Substance: METFORMIN HYDROCHLORIDE
     Indication: Type 2 diabetes mellitus
     Route: 048
     Dates: start: 20201124, end: 20210806
  3. PREDNISOLONE [Concomitant]
     Active Substance: PREDNISOLONE
  4. DESOGESTREL [Concomitant]
     Active Substance: DESOGESTREL
     Dosage: 1X1
  5. MOMETASONE [Concomitant]
     Active Substance: MOMETASONE
  6. AERIUS (DESLORATADINE) [Concomitant]
     Active Substance: DESLORATADINE
  7. LIVOSTIN [Concomitant]
     Active Substance: LEVOCABASTINE HYDROCHLORIDE
  8. BRICANYL [Concomitant]
     Active Substance: TERBUTALINE SULFATE
  9. PULMICORT TURBUHALER [Concomitant]
     Active Substance: BUDESONIDE
  10. ATORVASTATIN [Concomitant]
     Active Substance: ATORVASTATIN
  11. LEVOTHYROXINE SODIUM [Concomitant]
     Active Substance: LEVOTHYROXINE SODIUM
     Dosage: 1X1

REACTIONS (1)
  - Lactic acidosis [Recovered/Resolved]

NARRATIVE: CASE EVENT DATE: 20210804
